FAERS Safety Report 10406471 (Version 1)
Quarter: 2014Q3

REPORT INFORMATION
  Report Type: Spontaneous
  Country: US (occurrence: None)
  Receive Date: 20140822
  Receipt Date: 20140822
  Transmission Date: 20150326
  Serious: Yes (Hospitalization)
  Sender: FDA-Public Use
  Company Number: None

PATIENT
  Age: 62 Year
  Sex: Female
  Weight: 54.7 kg

DRUGS (1)
  1. BEVACIZUMAB [Suspect]
     Active Substance: BEVACIZUMAB

REACTIONS (8)
  - Status epilepticus [None]
  - Visual impairment [None]
  - Nuclear magnetic resonance imaging abnormal [None]
  - Aura [None]
  - Drug dose omission [None]
  - Headache [None]
  - Hypertension [None]
  - Blood pressure decreased [None]

NARRATIVE: CASE EVENT DATE: 20140812
